FAERS Safety Report 15935903 (Version 1)
Quarter: 2019Q1

REPORT INFORMATION
  Report Type: Report from Study
  Country: IT (occurrence: IT)
  Receive Date: 20190208
  Receipt Date: 20190208
  Transmission Date: 20190417
  Serious: Yes (Hospitalization)
  Sender: FDA-Public Use
  Company Number: IT-ACCORD-106158

PATIENT
  Age: 48 Year
  Sex: Female

DRUGS (1)
  1. QUETIAPINE. [Suspect]
     Active Substance: QUETIAPINE
     Indication: DRUG ABUSE
     Route: 048
     Dates: start: 20180421, end: 20180421

REACTIONS (6)
  - Drug abuse [Unknown]
  - Hypertension [Recovered/Resolved]
  - Dysarthria [Recovered/Resolved]
  - Sedation [Recovered/Resolved]
  - Confusional state [Recovered/Resolved]
  - Balance disorder [Recovered/Resolved]

NARRATIVE: CASE EVENT DATE: 20180421
